FAERS Safety Report 22264851 (Version 1)
Quarter: 2023Q2

REPORT INFORMATION
  Report Type: Spontaneous
  Country: US (occurrence: US)
  Receive Date: 20230428
  Receipt Date: 20230428
  Transmission Date: 20230722
  Serious: Yes (Other)
  Sender: FDA-Public Use
  Company Number: US-BAYER-2023A054944

PATIENT

DRUGS (1)
  1. TINACTIN [Suspect]
     Active Substance: TOLNAFTATE
     Dosage: UNK
     Dates: start: 20230417, end: 20230417

REACTIONS (2)
  - Application site burn [Unknown]
  - Application site pain [Unknown]

NARRATIVE: CASE EVENT DATE: 20230417
